FAERS Safety Report 16774818 (Version 2)
Quarter: 2019Q4

REPORT INFORMATION
  Report Type: Spontaneous
  Country: US (occurrence: US)
  Receive Date: 20190905
  Receipt Date: 20191022
  Transmission Date: 20200122
  Serious: No
  Sender: FDA-Public Use
  Company Number: US-TEVA-2019-US-1102282

PATIENT
  Sex: Female

DRUGS (1)
  1. GRANIX [Suspect]
     Active Substance: TBO-FILGRASTIM
     Indication: ALLOGENIC BONE MARROW TRANSPLANTATION THERAPY
     Dosage: FORM STRENGTH:UNKOWN
     Route: 065

REACTIONS (1)
  - Off label use [Unknown]
